FAERS Safety Report 8576533-3 (Version None)
Quarter: 2012Q3

REPORT INFORMATION
  Report Type: 
  Country: None (occurrence: None)
  Receive Date: 20120807
  Receipt Date: 20120606
  Transmission Date: 20120928
  Serious: Yes (Death)
  Sender: FDA-Public Use
  Company Number: FR-ROCHE-1095790

PATIENT
  Sex: Female

DRUGS (4)
  1. LEUCOVORIN CALCIUM [Concomitant]
     Indication: CHEMOTHERAPY
     Dates: start: 20090513, end: 20090531
  2. FLUOROURACIL [Concomitant]
     Indication: CHEMOTHERAPY
     Dates: start: 20090513, end: 20090531
  3. IRINOTECAN HCL [Concomitant]
     Indication: CHEMOTHERAPY
     Dates: start: 20090513, end: 20120531
  4. AVASTIN [Suspect]
     Indication: CHEMOTHERAPY
     Dates: start: 20090513, end: 20090531

REACTIONS (5)
  - DISEASE PROGRESSION [None]
  - NEUTROPENIA [None]
  - THROMBOCYTOPENIA [None]
  - DIARRHOEA [None]
  - ASTHENIA [None]
